FAERS Safety Report 4970860-4 (Version None)
Quarter: 2006Q2

REPORT INFORMATION
  Report Type: 
  Country: None (occurrence: None)
  Receive Date: 20060411
  Receipt Date: 20060411
  Transmission Date: 20061013
  Serious: Yes (Hospitalization, Other)
  Sender: FDA-Public Use
  Company Number: None

PATIENT
  Sex: Female
  Weight: 99.8 kg

DRUGS (2)
  1. CISPLATIN [Suspect]
     Indication: ADENOCARCINOMA OF THE CERVIX
     Dosage: 115 MG
     Dates: start: 20060304, end: 20060323
  2. ERBITUX [Suspect]
     Dosage: 955 MG
     Dates: start: 20060304, end: 20060323

REACTIONS (6)
  - BACK PAIN [None]
  - BACTERIA URINE [None]
  - INFECTION [None]
  - PYELONEPHRITIS [None]
  - PYREXIA [None]
  - WHITE BLOOD CELLS URINE POSITIVE [None]
